FAERS Safety Report 7520146-9 (Version None)
Quarter: 2011Q2

REPORT INFORMATION
  Report Type: 
  Country: None (occurrence: None)
  Receive Date: 20110602
  Receipt Date: 20110524
  Transmission Date: 20111010
  Serious: Yes (Other)
  Sender: FDA-Public Use
  Company Number: GB-ASTRAZENECA-2011SE31723

PATIENT
  Age: 66 Year
  Sex: Female
  Weight: 53.2 kg

DRUGS (6)
  1. TIBOLONE [Concomitant]
  2. PROPRANOLOL [Concomitant]
  3. LEVOTHYROXINE SODIUM [Concomitant]
  4. VALPROATE SODIUM [Concomitant]
  5. QUETIAPINE [Suspect]
     Indication: HYPOMANIA
     Route: 048
     Dates: start: 20090101, end: 20090201
  6. QUETIAPINE [Suspect]
     Route: 048
     Dates: start: 20090301, end: 20100401

REACTIONS (1)
  - MUSCULOSKELETAL STIFFNESS [None]
